FAERS Safety Report 25856956 (Version 2)
Quarter: 2025Q4

REPORT INFORMATION
  Report Type: Spontaneous
  Country: US (occurrence: US)
  Receive Date: 20250929
  Receipt Date: 20251010
  Transmission Date: 20260117
  Serious: Yes (Death, Hospitalization, Other)
  Sender: SCILEX PHARMACEUTICALS INC.
  Company Number: US-SCILEX PHARMACEUTICALS INC.-US-SOR-25-00220

PATIENT
  Sex: Male

DRUGS (8)
  1. COLCHICINE [Suspect]
     Active Substance: COLCHICINE
     Indication: Arthralgia
     Dosage: UNK, UNK
     Route: 065
  2. ALLOPURINOL [Suspect]
     Active Substance: ALLOPURINOL
     Indication: Arthralgia
     Dosage: 50 MILLIGRAM, QD
     Route: 065
  3. AMLODIPINE [Concomitant]
     Active Substance: AMLODIPINE BESYLATE
     Indication: Product used for unknown indication
     Dosage: UNK, UNK
     Route: 065
  4. HYDROCHLOROTHIAZIDE [Concomitant]
     Active Substance: HYDROCHLOROTHIAZIDE
     Indication: Product used for unknown indication
     Dosage: UNK, UNK
     Route: 065
  5. METOPROLOL SUCCINATE [Concomitant]
     Active Substance: METOPROLOL SUCCINATE
     Indication: Product used for unknown indication
     Dosage: UNK, UNK
     Route: 065
  6. METFORMIN [Concomitant]
     Active Substance: METFORMIN HYDROCHLORIDE
     Indication: Product used for unknown indication
     Dosage: UNK, UNK
     Route: 065
  7. BUPROPION HYDROCHLORIDE [Concomitant]
     Active Substance: BUPROPION HYDROCHLORIDE
     Indication: Product used for unknown indication
     Dosage: UNK, UNK
     Route: 065
  8. ALBUTEROL [Concomitant]
     Active Substance: ALBUTEROL
     Indication: Product used for unknown indication
     Dosage: UNK UNK, PRN
     Route: 065

REACTIONS (28)
  - Alanine aminotransferase increased [Fatal]
  - Condition aggravated [Fatal]
  - Aspartate aminotransferase increased [Fatal]
  - Condition aggravated [Fatal]
  - Metabolic acidosis [Fatal]
  - Acute hepatic failure [Fatal]
  - Musculoskeletal disorder [Fatal]
  - Respiratory distress [Fatal]
  - Drug-induced liver injury [Fatal]
  - Hepatic failure [Fatal]
  - Hepatotoxicity [Fatal]
  - Multiple organ dysfunction syndrome [Fatal]
  - Haemoptysis [Fatal]
  - Cough [Fatal]
  - Dyspnoea [Fatal]
  - Renal failure [Fatal]
  - Blood creatinine increased [Fatal]
  - Hyperbilirubinaemia [Fatal]
  - Blood alkaline phosphatase increased [Fatal]
  - White blood cell count increased [Fatal]
  - Hepatosplenomegaly [Fatal]
  - Lymphadenopathy [Fatal]
  - Ascites [Fatal]
  - Peripancreatic inflammation [Fatal]
  - Hyperbilirubinaemia [Fatal]
  - Gallbladder enlargement [Fatal]
  - Metabolic acidosis [Fatal]
  - Biliary dilatation [Fatal]
